FAERS Safety Report 26168880 (Version 1)
Quarter: 2025Q4

REPORT INFORMATION
  Report Type: Spontaneous
  Country: US (occurrence: US)
  Receive Date: 20251217
  Receipt Date: 20251217
  Transmission Date: 20260117
  Serious: No
  Sender: PACIRA
  Company Number: US-ORG100016242-2025000298

PATIENT

DRUGS (2)
  1. EXPAREL [Suspect]
     Active Substance: BUPIVACAINE
     Indication: Nerve block
     Dosage: NOT PROVIDED
     Route: 065
  2. CALCIUM SULFATE DIHYDRATE [Suspect]
     Active Substance: CALCIUM SULFATE DIHYDRATE
     Indication: Nerve block
     Dosage: NOT PROVIDED
     Route: 065

REACTIONS (2)
  - Therapeutic product effect prolonged [Unknown]
  - Labelled drug-drug interaction medication error [Unknown]
